FAERS Safety Report 6118919-2 (Version None)
Quarter: 2009Q1

REPORT INFORMATION
  Report Type: 
  Country: None (occurrence: None)
  Receive Date: 20090316
  Receipt Date: 20090305
  Transmission Date: 20090719
  Serious: Yes (Hospitalization)
  Sender: FDA-Public Use
  Company Number: DE-BAXTER-2009BH003679

PATIENT
  Age: 61 Year

DRUGS (8)
  1. ENDOXAN BAXTER [Suspect]
     Indication: CHEMOTHERAPY
     Route: 042
     Dates: start: 20080108, end: 20080108
  2. TAXOTERE [Suspect]
     Indication: CHEMOTHERAPY
     Route: 042
     Dates: start: 20080108, end: 20080108
  3. ADRIMEDAC [Suspect]
     Indication: CHEMOTHERAPY
     Route: 042
     Dates: start: 20080108, end: 20080108
  4. RAMIPRIL [Concomitant]
  5. FELODIPINE [Concomitant]
  6. AARANE [Concomitant]
  7. TELFAST /UNK/ [Concomitant]
  8. SYMBICORT TURBUHALER ^DRACO^ [Concomitant]

REACTIONS (5)
  - ASTHMA [None]
  - DIARRHOEA [None]
  - DYSPNOEA [None]
  - RENAL FAILURE [None]
  - ROTAVIRUS INFECTION [None]
